FAERS Safety Report 21537137 (Version 1)
Quarter: 2022Q4

REPORT INFORMATION
  Report Type: Spontaneous
  Country: US (occurrence: None)
  Receive Date: 20221101
  Receipt Date: 20221101
  Transmission Date: 20230113
  Serious: Yes (Hospitalization)
  Sender: FDA-Public Use
  Company Number: None

PATIENT
  Age: 54 Year
  Sex: Male
  Weight: 79.8 kg

DRUGS (1)
  1. BELATACEPT [Suspect]
     Active Substance: BELATACEPT
     Indication: Renal transplant
     Dosage: OTHER FREQUENCY : EVERY 28 DAYS;?
     Route: 042
     Dates: start: 20210831

REACTIONS (12)
  - Road traffic accident [None]
  - Facial bones fracture [None]
  - Clavicle fracture [None]
  - Jaw fracture [None]
  - Contusion [None]
  - Paranasal sinus haemorrhage [None]
  - Ligament sprain [None]
  - Haemoperitoneum [None]
  - Pulmonary mass [None]
  - Congenital cystic kidney disease [None]
  - Hepatic cyst [None]
  - Nephrolithiasis [None]

NARRATIVE: CASE EVENT DATE: 20221014
